FAERS Safety Report 12081156 (Version 2)
Quarter: 2016Q2

REPORT INFORMATION
  Report Type: Spontaneous
  Country: ES (occurrence: ES)
  Receive Date: 20160216
  Receipt Date: 20160415
  Transmission Date: 20160815
  Serious: Yes (Other)
  Sender: FDA-Public Use
  Company Number: ES-TAKEDA-2016TUS002486

PATIENT

DRUGS (1)
  1. ENTYVIO [Suspect]
     Active Substance: VEDOLIZUMAB
     Indication: PRODUCT USED FOR UNKNOWN INDICATION
     Dosage: 300 MG, UNK
     Route: 065

REACTIONS (7)
  - Surgery [Unknown]
  - Dizziness [Unknown]
  - Peripheral vascular disorder [Unknown]
  - Drug ineffective [Unknown]
  - Pruritus [Unknown]
  - Paraesthesia [Unknown]
  - Headache [Unknown]
